FAERS Safety Report 6131528-4 (Version None)
Quarter: 2009Q1

REPORT INFORMATION
  Report Type: 
  Country: None (occurrence: None)
  Receive Date: 20090325
  Receipt Date: 20081212
  Transmission Date: 20090719
  Serious: Yes (Life-Threatening, Hospitalization)
  Sender: FDA-Public Use
  Company Number: US-BRISTOL-MYERS SQUIBB COMPANY-14343461

PATIENT
  Age: 61 Year
  Sex: Male

DRUGS (7)
  1. ERBITUX [Suspect]
     Indication: COLON CANCER
     Dosage: DOSAGE RECEIVED 570MG
     Route: 042
     Dates: start: 20080604
  2. BENADRYL [Concomitant]
     Indication: PREMEDICATION
     Route: 042
  3. DECADRON [Concomitant]
     Indication: PREMEDICATION
     Route: 042
  4. ANZEMET [Concomitant]
     Indication: PREMEDICATION
     Route: 042
  5. ZANTAC [Concomitant]
     Indication: PREMEDICATION
     Route: 042
  6. ALOXI [Concomitant]
     Indication: PREMEDICATION
  7. PROVENTIL [Concomitant]
     Dosage: NEBULIZER
     Route: 055

REACTIONS (1)
  - ANAPHYLACTIC REACTION [None]
